FAERS Safety Report 23169437 (Version 1)
Quarter: 2023Q4

REPORT INFORMATION
  Report Type: Spontaneous
  Country: US (occurrence: US)
  Receive Date: 20231110
  Receipt Date: 20231110
  Transmission Date: 20240110
  Serious: Yes (Death, Other)
  Sender: FDA-Public Use
  Company Number: US-PBT-008560

PATIENT
  Age: 37 Year
  Sex: Male

DRUGS (6)
  1. TACROLIMUS [Suspect]
     Active Substance: TACROLIMUS
     Indication: Prophylaxis against transplant rejection
     Route: 048
  2. PACLITAXEL [Suspect]
     Active Substance: PACLITAXEL
     Indication: Clear cell renal cell carcinoma
     Dosage: 3 CYCLES
     Route: 065
  3. PREDNISONE [Suspect]
     Active Substance: PREDNISONE
     Indication: Prophylaxis against transplant rejection
     Route: 048
  4. AZATHIOPRINE [Suspect]
     Active Substance: AZATHIOPRINE
     Indication: Prophylaxis against transplant rejection
     Route: 048
  5. CARBOPLATIN [Suspect]
     Active Substance: CARBOPLATIN
     Indication: Clear cell renal cell carcinoma
     Dosage: 3 CYCLES
     Route: 065
  6. BEVACIZUMAB [Suspect]
     Active Substance: BEVACIZUMAB
     Indication: Clear cell renal cell carcinoma
     Dosage: 3 CYCLES
     Route: 065

REACTIONS (3)
  - Clear cell renal cell carcinoma [Fatal]
  - Drug ineffective for unapproved indication [Unknown]
  - Neoplasm progression [Fatal]
